FAERS Safety Report 7039095-8 (Version None)
Quarter: 2010Q4

REPORT INFORMATION
  Report Type: 
  Country: None (occurrence: None)
  Receive Date: 20101012
  Receipt Date: 20101004
  Transmission Date: 20110411
  Serious: Yes (Other)
  Sender: FDA-Public Use
  Company Number: DE-JNJFOC-20101000913

PATIENT
  Sex: Female
  Weight: 110 kg

DRUGS (1)
  1. CONCERTA [Suspect]
     Indication: PRODUCT USED FOR UNKNOWN INDICATION
     Dosage: 15-20 DOSE(S)
     Route: 048
     Dates: start: 20101004, end: 20101004

REACTIONS (2)
  - OVERDOSE [None]
  - SUICIDE ATTEMPT [None]
